FAERS Safety Report 15201517 (Version 2)
Quarter: 2018Q3

REPORT INFORMATION
  Report Type: Report from Study
  Country: JP (occurrence: JP)
  Receive Date: 20180726
  Receipt Date: 20180808
  Transmission Date: 20181010
  Serious: Yes (Death)
  Sender: FDA-Public Use
  Company Number: JP-BEH-2018093122

PATIENT
  Age: 88 Year
  Sex: Male
  Weight: 51.7 kg

DRUGS (9)
  1. BROTIZOLAM [Concomitant]
     Active Substance: BROTIZOLAM
     Route: 048
  2. FAMOTIDINE. [Concomitant]
     Active Substance: FAMOTIDINE
     Dosage: 20 MG, UNK
     Route: 048
  3. DONEPEZIL GENERICS [Concomitant]
     Route: 048
  4. XARELTO [Concomitant]
     Active Substance: RIVAROXABAN
     Route: 048
  5. BERIPLEX P/N [Suspect]
     Active Substance: COAGULATION FACTOR IX HUMAN\COAGULATION FACTOR VII HUMAN\COAGULATION FACTOR X HUMAN\PROTEIN C\PROTEIN S HUMAN\PROTHROMBIN
     Indication: HAEMORRHAGE
     Dosage: 1000 IU, UNK
     Route: 042
     Dates: start: 20171226
  6. LANIRAPID [Concomitant]
     Active Substance: METILDIGOXIN
     Route: 048
  7. MEMARY [Concomitant]
     Active Substance: MEMANTINE HYDROCHLORIDE
     Route: 048
  8. OMEPRAZOLE. [Concomitant]
     Active Substance: OMEPRAZOLE
     Dosage: UNK
     Route: 065
     Dates: start: 20171226, end: 20171226
  9. TRANSAMIN [Concomitant]
     Active Substance: TRANEXAMIC ACID
     Dosage: 1 G, UNK
     Route: 065
     Dates: start: 20171226, end: 20171226

REACTIONS (1)
  - Death [Fatal]
